FAERS Safety Report 7767609-9 (Version None)
Quarter: 2011Q3

REPORT INFORMATION
  Report Type: 
  Country: None (occurrence: None)
  Receive Date: 20110922
  Receipt Date: 20110916
  Transmission Date: 20111222
  Serious: Yes (Other)
  Sender: FDA-Public Use
  Company Number: US-UCBSA-041513

PATIENT
  Sex: Male
  Weight: 51.7 kg

DRUGS (2)
  1. VIMPAT [Suspect]
     Indication: CONVULSION
     Route: 048
     Dates: start: 20110801, end: 20110801
  2. DILANTIN [Concomitant]
     Indication: CONVULSION
     Route: 048

REACTIONS (3)
  - DRY SKIN [None]
  - SWELLING [None]
  - PRURITUS [None]
